FAERS Safety Report 13756127 (Version 1)
Quarter: 2017Q3

REPORT INFORMATION
  Report Type: Spontaneous
  Country: US (occurrence: US)
  Receive Date: 20170714
  Receipt Date: 20170714
  Transmission Date: 20171127
  Serious: Yes (Other)
  Sender: FDA-Public Use
  Company Number: US-AMGEN-USASP2017103886

PATIENT
  Age: 58 Year
  Sex: Female
  Weight: 99.55 kg

DRUGS (28)
  1. ENBREL [Suspect]
     Active Substance: ETANERCEPT
     Indication: RHEUMATOID ARTHRITIS
     Dosage: UNK
     Route: 065
     Dates: start: 200908, end: 200911
  2. ENBREL [Suspect]
     Active Substance: ETANERCEPT
     Dosage: UNK, 2 TIMES/WK
     Route: 065
     Dates: start: 201102, end: 201106
  3. REMICADE [Concomitant]
     Active Substance: INFLIXIMAB
     Dosage: UNK
     Dates: start: 201202, end: 201204
  4. CYMBALTA [Concomitant]
     Active Substance: DULOXETINE HYDROCHLORIDE
     Dosage: 60 MG, UNK
  5. FENTANYL. [Concomitant]
     Active Substance: FENTANYL
     Dosage: 75 MCG/HR PT72
  6. NYSTATIN. [Concomitant]
     Active Substance: NYSTATIN
     Indication: CANDIDA INFECTION
     Dosage: 100000 UNIT/ML, 1-2 TSP SWISH AND SWALLOW 4X/DAY AS NEEDED
  7. ARAVA [Concomitant]
     Active Substance: LEFLUNOMIDE
     Dosage: UNK
     Dates: start: 201404
  8. PENNSAID [Concomitant]
     Active Substance: DICLOFENAC SODIUM
     Dosage: 2 PUMPS TO EACH KNEE TWICE DAILY
  9. SYMBICORT [Concomitant]
     Active Substance: BUDESONIDE\FORMOTEROL FUMARATE DIHYDRATE
     Dosage: UNK
  10. SIMPONI [Concomitant]
     Active Substance: GOLIMUMAB
     Indication: RHEUMATOID ARTHRITIS
     Dosage: UNK
     Dates: start: 201010, end: 201101
  11. CIMZIA [Concomitant]
     Active Substance: CERTOLIZUMAB PEGOL
     Indication: RHEUMATOID ARTHRITIS
     Dosage: 200 MG X 2, 1 TIME (2 SYRINGES) EVERY 28 DAYS
     Route: 058
     Dates: start: 201404, end: 201705
  12. OTEZLA [Concomitant]
     Active Substance: APREMILAST
     Dosage: 30 MG, BID
     Dates: start: 201503
  13. REMICADE [Concomitant]
     Active Substance: INFLIXIMAB
     Indication: RHEUMATOID ARTHRITIS
     Dosage: UNK
  14. REMICADE [Concomitant]
     Active Substance: INFLIXIMAB
     Dosage: UNK
     Dates: start: 2013
  15. HUMIRA [Concomitant]
     Active Substance: ADALIMUMAB
     Dosage: UNK, QWK
     Dates: start: 201207, end: 201304
  16. BACLOFEN. [Concomitant]
     Active Substance: BACLOFEN
     Dosage: 10 MG, UNK
  17. OXYMORPHONE HCL [Concomitant]
     Active Substance: OXYMORPHONE HYDROCHLORIDE
     Dosage: 10 MG, BID
     Route: 048
  18. OXAPROZIN. [Concomitant]
     Active Substance: OXAPROZIN
     Dosage: UNK
     Dates: start: 201010
  19. SULINDAC. [Concomitant]
     Active Substance: SULINDAC
     Dosage: 200 MG, BID
     Route: 048
  20. METOPROLOL TARTRATE. [Concomitant]
     Active Substance: METOPROLOL TARTRATE
     Dosage: 25 MG, BID
  21. ARAVA [Concomitant]
     Active Substance: LEFLUNOMIDE
     Dosage: 20 MG, TAKE 2 TABLETS BY MOUTH ONCE DAILY WITH FOOD ALTERNATIRG WITH 1 TAB ONCE DAILY
     Route: 048
     Dates: start: 201210, end: 201401
  22. ENBREL [Suspect]
     Active Substance: ETANERCEPT
     Dosage: UNK
     Route: 065
     Dates: start: 200912, end: 201009
  23. HUMIRA [Concomitant]
     Active Substance: ADALIMUMAB
     Indication: RHEUMATOID ARTHRITIS
     Dosage: UNK
     Dates: start: 201106, end: 201201
  24. XELJANZ [Concomitant]
     Active Substance: TOFACITINIB CITRATE
     Dosage: UNK
     Dates: start: 201401, end: 20140721
  25. TOPAMAX [Concomitant]
     Active Substance: TOPIRAMATE
     Dosage: 25 MG, UNK
  26. ARAVA [Concomitant]
     Active Substance: LEFLUNOMIDE
     Dosage: 30 MG, UNK
     Dates: start: 201407, end: 201703
  27. METHOTREXATE. [Concomitant]
     Active Substance: METHOTREXATE
     Dosage: UNK
     Dates: start: 200805, end: 201310
  28. VASOTEC [Concomitant]
     Active Substance: ENALAPRIL MALEATE
     Dosage: 5 MG, BID
     Route: 048

REACTIONS (15)
  - Dry mouth [Unknown]
  - Synovitis [Unknown]
  - Vitamin D deficiency [Unknown]
  - Stress [Unknown]
  - Gait inability [Unknown]
  - Oedema peripheral [Unknown]
  - Pterygium [Unknown]
  - Drug ineffective [Unknown]
  - Obesity [Unknown]
  - Infection [Unknown]
  - Pneumonia [Unknown]
  - Osteopenia [Unknown]
  - Rheumatoid arthritis [Unknown]
  - Lacrimal gland enlargement [Unknown]
  - Heart rate increased [Unknown]

NARRATIVE: CASE EVENT DATE: 20160428
